FAERS Safety Report 16807814 (Version 2)
Quarter: 2019Q4

REPORT INFORMATION
  Report Type: Report from Study
  Country: JP (occurrence: JP)
  Receive Date: 20190915
  Receipt Date: 20191001
  Transmission Date: 20200122
  Serious: Yes (Hospitalization)
  Sender: FDA-Public Use
  Company Number: PHJP2019JP011809

PATIENT
  Age: 46 Year
  Sex: Female

DRUGS (8)
  1. REVOLADE TAB [Suspect]
     Active Substance: ELTROMBOPAG
     Dosage: 50 MG, UNK
     Route: 048
     Dates: start: 20181214, end: 20190516
  2. NEORAL [Concomitant]
     Active Substance: CYCLOSPORINE
     Dosage: 75 MG, UNK
     Route: 048
     Dates: start: 20190419, end: 20190516
  3. NEORAL [Concomitant]
     Active Substance: CYCLOSPORINE
     Dosage: 100 MG, UNK
     Route: 048
     Dates: start: 20190913
  4. REVOLADE TAB [Suspect]
     Active Substance: ELTROMBOPAG
     Dosage: 75 MG, UNK
     Route: 048
     Dates: start: 20190517, end: 20190823
  5. REVOLADE TAB [Suspect]
     Active Substance: ELTROMBOPAG
     Indication: APLASTIC ANAEMIA
     Dosage: 25 MG, UNK
     Route: 048
     Dates: start: 20181130, end: 20181213
  6. NEORAL [Concomitant]
     Active Substance: CYCLOSPORINE
     Dosage: 125 MG, UNK
     Route: 048
     Dates: start: 20190104, end: 20190410
  7. NEORAL [Concomitant]
     Active Substance: CYCLOSPORINE
     Indication: APLASTIC ANAEMIA
     Dosage: 150 MG, UNK
     Route: 048
     Dates: start: 20181130, end: 20190103
  8. NEORAL [Concomitant]
     Active Substance: CYCLOSPORINE
     Dosage: 50 MG, UNK
     Route: 048
     Dates: start: 20190517, end: 20190912

REACTIONS (1)
  - Pancreatitis acute [Not Recovered/Not Resolved]

NARRATIVE: CASE EVENT DATE: 20190823
